FAERS Safety Report 5542136-8 (Version None)
Quarter: 2007Q4

REPORT INFORMATION
  Report Type: 
  Country: None (occurrence: None)
  Receive Date: 20071210
  Receipt Date: 20070319
  Transmission Date: 20080405
  Serious: No
  Sender: FDA-Public Use
  Company Number: US-AMGEN-US215445

PATIENT
  Sex: Female

DRUGS (2)
  1. ENBREL [Suspect]
     Route: 065
     Dates: end: 20070201
  2. ZOSTAVAX [Concomitant]
     Route: 065
     Dates: start: 20070302

REACTIONS (1)
  - PSORIATIC ARTHROPATHY [None]
